FAERS Safety Report 8034454-9 (Version None)
Quarter: 2012Q1

REPORT INFORMATION
  Report Type: 
  Country: None (occurrence: None)
  Receive Date: 20120110
  Receipt Date: 20120104
  Transmission Date: 20120608
  Serious: Yes (Other)
  Sender: FDA-Public Use
  Company Number: US-ABBOTT-12P-163-0889986-00

PATIENT
  Sex: Female
  Weight: 110.32 kg

DRUGS (2)
  1. HUMIRA [Suspect]
     Indication: PSORIATIC ARTHROPATHY
     Dates: start: 20060101
  2. HUMIRA [Suspect]

REACTIONS (27)
  - BENIGN LYMPH NODE NEOPLASM [None]
  - DYSPNOEA [None]
  - CHILLS [None]
  - ABDOMINAL DISTENSION [None]
  - MUSCULOSKELETAL CHEST PAIN [None]
  - GASTROINTESTINAL HAEMORRHAGE [None]
  - HAEMATOCHEZIA [None]
  - INFLAMMATORY BOWEL DISEASE [None]
  - MUSCULOSKELETAL PAIN [None]
  - LACTOSE INTOLERANCE [None]
  - IRON DEFICIENCY [None]
  - HERNIA [None]
  - SURGICAL FAILURE [None]
  - CROHN'S DISEASE [None]
  - ANAEMIA [None]
  - SMALL INTESTINAL STENOSIS [None]
  - PALPITATIONS [None]
  - VITAMIN B12 DECREASED [None]
  - HAEMOGLOBIN DECREASED [None]
  - SERUM FERRITIN DECREASED [None]
  - ULCER HAEMORRHAGE [None]
  - PNEUMONIA [None]
  - FLATULENCE [None]
  - FOREIGN BODY [None]
  - COUGH [None]
  - BLOOD URINE PRESENT [None]
  - HAEMORRHAGE [None]
